FAERS Safety Report 6689864-9 (Version None)
Quarter: 2010Q2

REPORT INFORMATION
  Report Type: 
  Country: None (occurrence: None)
  Receive Date: 20100421
  Receipt Date: 20100412
  Transmission Date: 20101027
  Serious: Yes (Other)
  Sender: FDA-Public Use
  Company Number: US-ASTRAZENECA-2010SE11718

PATIENT
  Age: 64 Year
  Sex: Female
  Weight: 79.8 kg

DRUGS (16)
  1. SYMBICORT [Suspect]
     Indication: ASTHMA
     Dosage: 640 MCG PER DAY
     Route: 055
     Dates: start: 20090723
  2. SYMBICORT [Suspect]
     Indication: CHRONIC OBSTRUCTIVE PULMONARY DISEASE
     Dosage: 640 MCG PER DAY
     Route: 055
     Dates: start: 20090723
  3. RHINOCORT [Suspect]
     Indication: SINUSITIS
     Dosage: UNKNOWN DOSE BID
     Route: 045
  4. RHINOCORT [Suspect]
     Indication: RHINITIS ALLERGIC
     Dosage: UNKNOWN DOSE BID
     Route: 045
  5. CRESTOR [Concomitant]
  6. AVELOX [Concomitant]
  7. FLONASE [Concomitant]
  8. ALBUTEROL [Concomitant]
  9. ACETYLCYSTEINE [Concomitant]
  10. SPIRIVA [Concomitant]
     Dosage: 1 INHALATION
     Route: 055
     Dates: start: 20090728
  11. PREDNISONE [Concomitant]
     Indication: COLITIS ULCERATIVE
     Dosage: 10 GMS
  12. CLOZAPAM [Concomitant]
  13. LASIX [Concomitant]
  14. FLEXERIL [Concomitant]
  15. PREMPHASE 14/14 [Concomitant]
  16. HYDROCODONE BITARTRATE [Concomitant]

REACTIONS (2)
  - BRONCHITIS [None]
  - INFARCTION [None]
